FAERS Safety Report 5828168-0 (Version None)
Quarter: 2008Q3

REPORT INFORMATION
  Report Type: 
  Country: None (occurrence: None)
  Receive Date: 20080729
  Receipt Date: 20080714
  Transmission Date: 20090109
  Serious: Yes (Hospitalization, Other)
  Sender: FDA-Public Use
  Company Number: AZADE200800222

PATIENT
  Age: 58 Year
  Sex: Male
  Weight: 91 kg

DRUGS (1)
  1. VIDAZA [Suspect]
     Indication: MYELODYSPLASTIC SYNDROME
     Dosage: 97 MG/M2, SUBCUTANEOUS
     Route: 058
     Dates: start: 20080707, end: 20080711

REACTIONS (1)
  - THROMBOTIC THROMBOCYTOPENIC PURPURA [None]
